FAERS Safety Report 24559513 (Version 1)
Quarter: 2024Q4

REPORT INFORMATION
  Report Type: Spontaneous
  Country: AT (occurrence: AT)
  Receive Date: 20241029
  Receipt Date: 20241029
  Transmission Date: 20250114
  Serious: Yes (Death, Other)
  Sender: JOHNSON AND JOHNSON
  Company Number: AT-STEMLINE THERAPEUTICS, INC-2024-STML-AT005605

PATIENT
  Age: 54 Year
  Sex: Male

DRUGS (3)
  1. TALVEY [Suspect]
     Active Substance: TALQUETAMAB-TGVS
     Indication: Plasma cell myeloma
     Dosage: UNK
     Route: 065
     Dates: start: 20240501
  2. TECVAYLI [Suspect]
     Active Substance: TECLISTAMAB-CQYV
     Indication: Plasma cell myeloma
     Dosage: UNK
     Route: 065
  3. SELINEXOR [Suspect]
     Active Substance: SELINEXOR
     Indication: Plasma cell myeloma
     Dosage: UNK
     Route: 065
     Dates: start: 20240501

REACTIONS (4)
  - Plasma cell myeloma [Fatal]
  - Metastases to peritoneum [Fatal]
  - Cytokine release syndrome [Unknown]
  - Infection [Unknown]
